FAERS Safety Report 5022346-9 (Version None)
Quarter: 2006Q2

REPORT INFORMATION
  Report Type: 
  Country: None (occurrence: None)
  Receive Date: 20060609
  Receipt Date: 20060529
  Transmission Date: 20061013
  Serious: Yes (Other)
  Sender: FDA-Public Use
  Company Number: PHBS2006BR08446

PATIENT
  Age: 40 Year
  Sex: Female
  Weight: 64 kg

DRUGS (14)
  1. LUDIOMIL [Suspect]
     Indication: OBSESSIVE-COMPULSIVE DISORDER
     Dosage: 1 DF, QHS
     Route: 048
     Dates: start: 20060101
  2. VENLAFAXINE HCL [Concomitant]
  3. CYMBALTA [Concomitant]
  4. CONCERTA [Concomitant]
     Dosage: 54 MG/D
  5. RISPERIDONE [Concomitant]
  6. CARBOLITHIUM [Concomitant]
  7. EQUILID [Concomitant]
  8. BUPROPION HYDROCHLORIDE [Concomitant]
  9. CITALOPRAM HYDROBROMIDE [Concomitant]
  10. FELDENE [Concomitant]
  11. RIVOTRIL [Concomitant]
  12. INIBEX S [Concomitant]
  13. PAROXETINE HYDROCHLORIDE [Concomitant]
  14. SEROQUEL [Concomitant]

REACTIONS (1)
  - DEPRESSION [None]
